FAERS Safety Report 9801388 (Version 1)
Quarter: 2014Q1

REPORT INFORMATION
  Report Type: Spontaneous
  Country: US (occurrence: US)
  Receive Date: 20140107
  Receipt Date: 20140107
  Transmission Date: 20141002
  Serious: Yes (Death)
  Sender: FDA-Public Use
  Company Number: US-UCBSA-108152

PATIENT
  Age: 64 Year
  Sex: Female

DRUGS (4)
  1. NITROGLYCERIN [Suspect]
     Route: 048
  2. FENTANYL [Suspect]
     Route: 062
  3. MORPHINE (EXTENDED RELEASE) [Suspect]
     Route: 048
  4. MORPHINE [Suspect]
     Route: 048

REACTIONS (1)
  - Intentional drug misuse [Fatal]
